FAERS Safety Report 6132518-8 (Version None)
Quarter: 2009Q1

REPORT INFORMATION
  Report Type: 
  Country: None (occurrence: None)
  Receive Date: 20090325
  Receipt Date: 20090311
  Transmission Date: 20090719
  Serious: Yes (Hospitalization)
  Sender: FDA-Public Use
  Company Number: DE-GENENTECH-274685

PATIENT
  Sex: Female

DRUGS (3)
  1. BEVACIZUMAB [Suspect]
     Indication: OVARIAN EPITHELIAL CANCER
     Dosage: 555 MG, UNK
     Route: 042
     Dates: start: 20080923
  2. PACLITAXEL [Suspect]
     Indication: OVARIAN EPITHELIAL CANCER
     Dosage: 345 MG, UNK
     Route: 042
     Dates: start: 20080923
  3. CARBOPLATIN [Suspect]
     Indication: OVARIAN EPITHELIAL CANCER
     Dosage: 512.75 MG, UNK
     Route: 042
     Dates: start: 20080923

REACTIONS (3)
  - CEREBRAL ISCHAEMIA [None]
  - GLOBAL AMNESIA [None]
  - SYNCOPE [None]
